FAERS Safety Report 7470403-X (Version None)
Quarter: 2011Q2

REPORT INFORMATION
  Report Type: 
  Country: None (occurrence: None)
  Receive Date: 20110510
  Receipt Date: 20110504
  Transmission Date: 20111010
  Serious: Yes (Other)
  Sender: FDA-Public Use
  Company Number: US-ABBOTT-11P-163-0723477-00

PATIENT
  Sex: Female

DRUGS (3)
  1. HUMIRA [Suspect]
     Indication: ANKYLOSING SPONDYLITIS
     Route: 058
     Dates: start: 20110502
  2. METHOTREXATE [Concomitant]
     Indication: RHEUMATOID ARTHRITIS
     Dosage: TAKES IN LIQUID AND DRINKS WEEKLY
     Route: 048
  3. HUMIRA [Suspect]
     Route: 058
     Dates: start: 20100601, end: 20110129

REACTIONS (8)
  - NERVE COMPRESSION [None]
  - CATHETER SITE RELATED REACTION [None]
  - INCISION SITE PAIN [None]
  - SKIN DISCOLOURATION [None]
  - POST PROCEDURAL INFECTION [None]
  - PARAESTHESIA [None]
  - INCISION SITE ERYTHEMA [None]
  - HYPOAESTHESIA [None]
